FAERS Safety Report 7150060 (Version 4)
Quarter: 2018Q4

REPORT INFORMATION
  Report Type: Report from Study
  Country: JP (occurrence: JP)
  Receive Date: 20091015
  Receipt Date: 20181001
  Transmission Date: 20190205
  Serious: Yes (Disabling, Other)
  Sender: FDA-Public Use
  Company Number: PHHY2009JP42919

PATIENT
  Age: 62 Year
  Sex: Female

DRUGS (8)
  1. TASIGNA [Suspect]
     Active Substance: NILOTINIB
     Dosage: 400 MG,
     Route: 048
     Dates: start: 20090810, end: 20090812
  2. TASIGNA [Suspect]
     Active Substance: NILOTINIB
     Dosage: 600 MG,
     Route: 048
     Dates: start: 20090813, end: 20090816
  3. TASIGNA [Suspect]
     Active Substance: NILOTINIB
     Indication: CHRONIC MYELOID LEUKAEMIA
     Dosage: 800 MG,
     Route: 048
     Dates: start: 20090619, end: 20090723
  4. TASIGNA [Suspect]
     Active Substance: NILOTINIB
     Dosage: 800 MG,
     Route: 048
     Dates: start: 20090817, end: 20090820
  5. TASIGNA [Suspect]
     Active Substance: NILOTINIB
     Dosage: 200 MG,
     Route: 048
     Dates: start: 20090806, end: 20090809
  6. PREDONINE [Concomitant]
     Active Substance: PREDNISOLONE
     Indication: PRODUCT USED FOR UNKNOWN INDICATION
     Dosage: 30 MG, UNK
     Route: 048
     Dates: start: 20090723
  7. PREDONINE [Concomitant]
     Active Substance: PREDNISOLONE
     Dosage: 20 MG, UNK
     Route: 048
     Dates: end: 20090717
  8. TASIGNA [Suspect]
     Active Substance: NILOTINIB
     Dosage: 600 MG, DAILY
     Route: 048
     Dates: start: 20090821

REACTIONS (3)
  - Erythema multiforme [Recovering/Resolving]
  - Platelet count increased [Unknown]
  - Hyperbilirubinaemia [Not Recovered/Not Resolved]

NARRATIVE: CASE EVENT DATE: 20090713
